FAERS Safety Report 8193327-1 (Version None)
Quarter: 2012Q1

REPORT INFORMATION
  Report Type: 
  Country: None (occurrence: None)
  Receive Date: 20120308
  Receipt Date: 20120229
  Transmission Date: 20120608
  Serious: Yes (Other)
  Sender: FDA-Public Use
  Company Number: GB-ABBOTT-12P-167-0901558-00

PATIENT
  Age: 80 Year
  Sex: Male

DRUGS (8)
  1. LEUPROLIDE ACETATE [Suspect]
     Route: 058
     Dates: start: 20110301
  2. LACTULOSE [Concomitant]
     Indication: CONSTIPATION
     Route: 065
  3. DIETHYL-STILBESTROL TAB [Concomitant]
     Indication: PRODUCT USED FOR UNKNOWN INDICATION
     Dosage: 3 MG (1 MG, 3 IN 1 DAY)
     Route: 065
  4. FELODIPINE MODIFIED RELEASE [Concomitant]
     Indication: PRODUCT USED FOR UNKNOWN INDICATION
     Dosage: 20 MG (10 MG, 2 IN 1 DAY)
     Route: 065
  5. LEUPROLIDE ACETATE [Suspect]
     Indication: PROSTATE CANCER
     Route: 065
     Dates: start: 20101208
  6. LEUPROLIDE ACETATE [Suspect]
     Route: 058
     Dates: start: 20110525
  7. ASPIRIN [Concomitant]
     Indication: PRODUCT USED FOR UNKNOWN INDICATION
     Route: 065
  8. BISOPROLOL FUMARATE [Concomitant]
     Indication: PRODUCT USED FOR UNKNOWN INDICATION
     Dosage: 20 MG (10 MG, 2 IN 1 DAY)
     Route: 065

REACTIONS (1)
  - PROSTATIC SPECIFIC ANTIGEN INCREASED [None]
